FAERS Safety Report 5136183-8 (Version None)
Quarter: 2006Q4

REPORT INFORMATION
  Report Type: 
  Country: None (occurrence: None)
  Receive Date: 20061027
  Receipt Date: 20060805
  Transmission Date: 20070319
  Serious: Yes (Hospitalization)
  Sender: FDA-Public Use
  Company Number: US-ROCHE-458591

PATIENT
  Age: 52 Year
  Sex: Female

DRUGS (6)
  1. PEGASYS [Suspect]
     Dosage: ROUTE REPORTED AS INJ.
     Route: 050
     Dates: start: 20060728
  2. RIBAVIRIN [Suspect]
     Route: 048
     Dates: start: 20060728, end: 20060819
  3. RIBAVIRIN [Suspect]
     Dosage: DOSAGE REDUCED.
     Route: 048
     Dates: start: 20060820
  4. RIBAVIRIN [Suspect]
     Dosage: DOSAGE INCREASED FOR THREE DAYS.
     Route: 048
     Dates: start: 20060615, end: 20060615
  5. RIBAVIRIN [Suspect]
     Dosage: THERAPY REINTRODUCED AFTER TWO DAYS.
     Route: 048
     Dates: start: 20060615
  6. ANTIHYPERTENSIVE DRUG NOS [Suspect]
     Indication: HYPERTENSION
     Route: 065

REACTIONS (5)
  - BLOOD PRESSURE INCREASED [None]
  - DIZZINESS [None]
  - HYPOTENSION [None]
  - RED BLOOD CELL COUNT DECREASED [None]
  - TRANSIENT ISCHAEMIC ATTACK [None]
